FAERS Safety Report 7475271-8 (Version None)
Quarter: 2011Q2

REPORT INFORMATION
  Report Type: 
  Country: None (occurrence: None)
  Receive Date: 20110512
  Receipt Date: 20110428
  Transmission Date: 20111010
  Serious: Yes (Hospitalization)
  Sender: FDA-Public Use
  Company Number: GB-MYLANLABS-2011S1008770

PATIENT
  Sex: Male
  Weight: 3 kg

DRUGS (2)
  1. FLUOXETINE [Suspect]
     Dosage: 40MG DAILY
     Route: 064
  2. FLUOXETINE [Suspect]
     Indication: DEPRESSION
     Dosage: 20MG DAILY
     Route: 064

REACTIONS (3)
  - NERVOUS SYSTEM DISORDER [None]
  - DRUG EXPOSURE DURING PREGNANCY [None]
  - RESPIRATORY DISTRESS [None]
